FAERS Safety Report 5505720-3 (Version None)
Quarter: 2007Q4

REPORT INFORMATION
  Report Type: 
  Country: None (occurrence: None)
  Receive Date: 20071102
  Receipt Date: 20071024
  Transmission Date: 20080405
  Serious: Yes (Other)
  Sender: FDA-Public Use
  Company Number: GB-PFIZER INC-2007085607

PATIENT
  Sex: Female
  Weight: 60 kg

DRUGS (2)
  1. GABAPENTIN [Suspect]
     Indication: EPILEPSY
     Route: 048
  2. KEPPRA [Concomitant]
     Route: 048

REACTIONS (1)
  - OSTEOPENIA [None]
